FAERS Safety Report 5254662-X (Version None)
Quarter: 2007Q1

REPORT INFORMATION
  Report Type: 
  Country: None (occurrence: None)
  Receive Date: 20070302
  Receipt Date: 20070219
  Transmission Date: 20070707
  Serious: Yes (Other)
  Sender: FDA-Public Use
  Company Number: US-PFIZER INC-2007015348

PATIENT
  Sex: Male
  Weight: 74.8 kg

DRUGS (5)
  1. DETROL LA [Suspect]
     Indication: MICTURITION DISORDER
  2. TAMSULOSIN HCL [Suspect]
     Indication: MICTURITION DISORDER
  3. VYTORIN [Concomitant]
  4. PLAVIX [Concomitant]
  5. CORTISONE ACETATE [Concomitant]

REACTIONS (3)
  - ARRHYTHMIA [None]
  - CONDITION AGGRAVATED [None]
  - HYPOTENSION [None]
